FAERS Safety Report 18520989 (Version 1)
Quarter: 2020Q4

REPORT INFORMATION
  Report Type: Spontaneous
  Country: US (occurrence: US)
  Receive Date: 20201119
  Receipt Date: 20201119
  Transmission Date: 20210114
  Serious: No
  Sender: FDA-Public Use
  Company Number: US-JNJFOC-20201130800

PATIENT
  Sex: Female
  Weight: 48.58 kg

DRUGS (2)
  1. ZYRTEC [Suspect]
     Active Substance: CETIRIZINE HYDROCHLORIDE
     Indication: INFUSION RELATED REACTION
     Route: 065
  2. REMICADE [Concomitant]
     Active Substance: INFLIXIMAB
     Indication: RHEUMATOID ARTHRITIS
     Route: 042
     Dates: start: 2019

REACTIONS (2)
  - Off label use [Unknown]
  - Product use in unapproved indication [Unknown]
